FAERS Safety Report 19058832 (Version 2)
Quarter: 2021Q2

REPORT INFORMATION
  Report Type: Spontaneous
  Country: US (occurrence: US)
  Receive Date: 20210325
  Receipt Date: 20210412
  Transmission Date: 20210717
  Serious: Yes (Hospitalization, Other)
  Sender: FDA-Public Use
  Company Number: US-SA-2021SA093114

PATIENT
  Age: 60 Year
  Sex: Male

DRUGS (2)
  1. RIVAROXABAN [Concomitant]
     Active Substance: RIVAROXABAN
     Indication: ATRIAL FIBRILLATION
     Dosage: UNK
  2. DOCETAXEL. [Suspect]
     Active Substance: DOCETAXEL
     Indication: PROSTATE CANCER METASTATIC
     Dosage: UNK
     Route: 065

REACTIONS (11)
  - Swelling [Recovering/Resolving]
  - Infective aneurysm [Recovering/Resolving]
  - Neck pain [Recovering/Resolving]
  - Carotid artery aneurysm [Recovering/Resolving]
  - Salmonellosis [Unknown]
  - Tachycardia [Unknown]
  - Purulence [Unknown]
  - Hypertension [Unknown]
  - Aneurysm ruptured [Recovering/Resolving]
  - Arteriosclerosis [Unknown]
  - Pyrexia [Unknown]
